FAERS Safety Report 9414564 (Version 1)
Quarter: 2013Q3

REPORT INFORMATION
  Report Type: Spontaneous
  Country: US (occurrence: US)
  Receive Date: 20130723
  Receipt Date: 20130723
  Transmission Date: 20140515
  Serious: Yes (Other)
  Sender: FDA-Public Use
  Company Number: US-TEVA-420563USA

PATIENT
  Age: 29 Year
  Sex: Female
  Weight: 64.01 kg

DRUGS (1)
  1. PARAGARD 380A [Suspect]
     Route: 015
     Dates: start: 20130618

REACTIONS (3)
  - Device dislocation [Not Recovered/Not Resolved]
  - Dyspareunia [Unknown]
  - Device expulsion [Not Recovered/Not Resolved]
